FAERS Safety Report 16744852 (Version 2)
Quarter: 2019Q3

REPORT INFORMATION
  Report Type: Report from Study
  Country: None (occurrence: GB)
  Receive Date: 20190827
  Receipt Date: 20190910
  Transmission Date: 20191005
  Serious: Yes (Hospitalization)
  Sender: FDA-Public Use
  Company Number: GB-ABBVIE-19K-167-2902247-00

PATIENT
  Sex: Female

DRUGS (1)
  1. DUODOPA [Suspect]
     Active Substance: CARBIDOPA\LEVODOPA
     Indication: PARKINSON^S DISEASE
     Dosage: 100ML CASSETTE DAILY??5MG/1ML??20MG/1ML;
     Route: 050

REACTIONS (7)
  - Abnormal dreams [Unknown]
  - Infection [Unknown]
  - Depressed mood [Unknown]
  - C-reactive protein increased [Unknown]
  - Stoma site discharge [Not Recovered/Not Resolved]
  - Bradykinesia [Unknown]
  - Device issue [Unknown]
